FAERS Safety Report 7964012-3 (Version None)
Quarter: 2011Q4

REPORT INFORMATION
  Report Type: 
  Country: None (occurrence: None)
  Receive Date: 20111208
  Receipt Date: 20111109
  Transmission Date: 20120403
  Serious: No
  Sender: FDA-Public Use
  Company Number: US-BAYER-2011-109737

PATIENT
  Age: 60 Year
  Sex: Female
  Weight: 58.957 kg

DRUGS (2)
  1. ALEVE (CAPLET) [Suspect]
     Indication: HEADACHE
     Dosage: 14 DF, UNK
     Route: 048
     Dates: start: 20010101
  2. IMITREX [Concomitant]

REACTIONS (1)
  - ABDOMINAL DISCOMFORT [None]
